FAERS Safety Report 25681438 (Version 1)
Quarter: 2025Q3

REPORT INFORMATION
  Report Type: Report from Study
  Country: US (occurrence: US)
  Receive Date: 20250814
  Receipt Date: 20250814
  Transmission Date: 20251020
  Serious: Yes (Other)
  Sender: ABBVIE
  Company Number: US-ABBVIE-6412385

PATIENT
  Age: 49 Year
  Sex: Female

DRUGS (1)
  1. SKYRIZI [Suspect]
     Active Substance: RISANKIZUMAB-RZAA
     Indication: Crohn^s disease
     Route: 058
     Dates: start: 20240110

REACTIONS (5)
  - Fistula [Recovering/Resolving]
  - Uterine dilation and curettage [Recovering/Resolving]
  - Osteomyelitis [Unknown]
  - Stoma creation [Unknown]
  - Device issue [Unknown]

NARRATIVE: CASE EVENT DATE: 20250101
